FAERS Safety Report 12531169 (Version 1)
Quarter: 2016Q3

REPORT INFORMATION
  Report Type: Spontaneous
  Country: GB (occurrence: GB)
  Receive Date: 20160706
  Receipt Date: 20160706
  Transmission Date: 20161109
  Serious: Yes (Death)
  Sender: FDA-Public Use
  Company Number: GB-TEVA-671541ACC

PATIENT

DRUGS (2)
  1. FLUDARABINE [Suspect]
     Active Substance: FLUDARABINE PHOSPHATE
  2. THIOTEPA. [Suspect]
     Active Substance: THIOTEPA
     Dosage: 10 MG

REACTIONS (1)
  - Thrombotic microangiopathy [Fatal]
